FAERS Safety Report 13548869 (Version 2)
Quarter: 2017Q2

REPORT INFORMATION
  Report Type: Spontaneous
  Country: US (occurrence: US)
  Receive Date: 20170516
  Receipt Date: 20170517
  Transmission Date: 20170830
  Serious: No
  Sender: FDA-Public Use
  Company Number: US-BRISTOL-MYERS SQUIBB COMPANY-BMS-2017-042544

PATIENT
  Sex: Male
  Weight: 114.29 kg

DRUGS (1)
  1. YERVOY [Suspect]
     Active Substance: IPILIMUMAB
     Indication: MALIGNANT MELANOMA
     Dosage: 1100 MG, UNK
     Route: 042
     Dates: start: 20170104, end: 20170215

REACTIONS (2)
  - Hyperchlorhydria [Unknown]
  - Overdose [Unknown]
